FAERS Safety Report 7573557-X (Version None)
Quarter: 2011Q2

REPORT INFORMATION
  Report Type: 
  Country: None (occurrence: None)
  Receive Date: 20110627
  Receipt Date: 20110610
  Transmission Date: 20111010
  Serious: No
  Sender: FDA-Public Use
  Company Number: US-B.I. PHARMACEUTICALS,INC./RIDGEFIELD-2011-BP-15125BP

PATIENT
  Age: 62 Year
  Sex: Male

DRUGS (4)
  1. LISINOPRIL [Concomitant]
     Indication: HYPERTENSION
     Route: 048
  2. LORAZEPAM [Concomitant]
     Indication: ANXIETY
     Route: 048
  3. ZYRTEC [Concomitant]
     Indication: HYPERSENSITIVITY
     Route: 048
  4. MIRAPEX [Suspect]
     Indication: PARKINSON'S DISEASE
     Dosage: 1.5 MG
     Route: 048
     Dates: start: 20110501

REACTIONS (2)
  - SINUS HEADACHE [None]
  - MIGRAINE [None]
